FAERS Safety Report 16797396 (Version 2)
Quarter: 2019Q4

REPORT INFORMATION
  Report Type: Report from Study
  Country: FR (occurrence: FR)
  Receive Date: 20190912
  Receipt Date: 20191217
  Transmission Date: 20200122
  Serious: Yes (Other)
  Sender: FDA-Public Use
  Company Number: FR-ROCHE-2396786

PATIENT
  Sex: Male

DRUGS (16)
  1. VENETOCLAX. [Suspect]
     Active Substance: VENETOCLAX
     Indication: MANTLE CELL LYMPHOMA
     Dosage: 20 MILLIGRAM /CYCLE 1 BIS, D1 TO D7
     Route: 048
     Dates: start: 20181206, end: 20181212
  2. BISOPROLOL [Concomitant]
     Active Substance: BISOPROLOL
     Indication: HYPERTENSION
     Route: 048
     Dates: start: 20181122
  3. VALACICLOVIR [Concomitant]
     Active Substance: VALACYCLOVIR HYDROCHLORIDE
     Indication: INFECTION PROPHYLAXIS
     Route: 065
  4. IBRUTINIB [Suspect]
     Active Substance: IBRUTINIB
     Dosage: CYCLE 1BIS, D8 TO D14
     Route: 048
     Dates: start: 20181213, end: 20181219
  5. AMLODIPINE [Concomitant]
     Active Substance: AMLODIPINE BESYLATE
     Indication: HYPERTENSION
     Route: 048
     Dates: start: 20181022
  6. PHENOXYMETHYLPENICILLIN [Concomitant]
     Active Substance: PENICILLIN V
     Indication: INFECTION PROPHYLAXIS
     Route: 065
  7. OBINUTUZUMAB. [Suspect]
     Active Substance: OBINUTUZUMAB
     Indication: MANTLE CELL LYMPHOMA
     Dosage: 1000 MILLIGRAM EVERY 1 CYCLE 1: 100 MG AT DAY 1 AND 900 MG AT DAY 2; 1000 MG AT DAY 8 AND DAY 15
     Route: 042
     Dates: start: 20181108, end: 20181122
  8. IBRUTINIB [Suspect]
     Active Substance: IBRUTINIB
     Dosage: FROM CYCLE 2 // STOP DUE TO THIS SAE
     Route: 048
     Dates: start: 20190103, end: 20190827
  9. FILGRASTIM [Concomitant]
     Active Substance: FILGRASTIM
     Indication: NEUTROPENIA
     Route: 065
     Dates: start: 20190131, end: 20190203
  10. IBRUTINIB [Suspect]
     Active Substance: IBRUTINIB
     Dosage: FROM CYCLE 1BIS, D15 TO D21
     Route: 048
     Dates: start: 20181220, end: 20181226
  11. IBRUTINIB [Suspect]
     Active Substance: IBRUTINIB
     Dosage: CYCLE 1BIS, D22 TO D28
     Route: 048
     Dates: start: 20181227, end: 20190102
  12. OBINUTUZUMAB. [Suspect]
     Active Substance: OBINUTUZUMAB
     Route: 042
     Dates: start: 20190703, end: 20190703
  13. IBRUTINIB [Suspect]
     Active Substance: IBRUTINIB
     Indication: MANTLE CELL LYMPHOMA
     Dosage: FROM CYCLE 1 TO CYCLE 9
     Route: 048
     Dates: start: 20181109, end: 20190827
  14. ALTIZIDE;SPIRONOLACTONE [Concomitant]
     Active Substance: ALTHIAZIDE\SPIRONOLACTONE
     Indication: HYPERTENSION
     Route: 048
     Dates: start: 20181022
  15. FOLINIC ACID [Concomitant]
     Active Substance: LEUCOVORIN
     Indication: INFECTION PROPHYLAXIS
     Route: 048
     Dates: start: 20181110
  16. SULFAMETHOXAZOLE/TRIMETHOPRIM [Concomitant]
     Active Substance: SULFAMETHOXAZOLE\TRIMETHOPRIM
     Indication: INFECTION PROPHYLAXIS
     Route: 048
     Dates: start: 20181110

REACTIONS (1)
  - Squamous cell carcinoma [Not Recovered/Not Resolved]

NARRATIVE: CASE EVENT DATE: 20190110
